FAERS Safety Report 6642673-9 (Version None)
Quarter: 2010Q1

REPORT INFORMATION
  Report Type: 
  Country: None (occurrence: None)
  Receive Date: 20100319
  Receipt Date: 20100309
  Transmission Date: 20100710
  Serious: Yes (Life-Threatening)
  Sender: FDA-Public Use
  Company Number: AU-BRISTOL-MYERS SQUIBB COMPANY-15018690

PATIENT

DRUGS (7)
  1. EFAVIRENZ TABS 600 MG [Suspect]
     Route: 064
  2. DIAZEPAM [Suspect]
     Route: 064
  3. OXAZEPAM [Suspect]
     Route: 064
  4. EMTRICITABINE [Suspect]
     Route: 064
  5. MIRTAZAPINE [Suspect]
     Route: 064
  6. TENOFOVIR DISOPROXIL FUMARATE [Suspect]
     Route: 064
  7. ANTIDEPRESSANT NOS [Suspect]
     Route: 064

REACTIONS (2)
  - CONGENITAL TRICUSPID VALVE STENOSIS [None]
  - HYPOPLASTIC RIGHT HEART SYNDROME [None]
